FAERS Safety Report 6157497-9 (Version None)
Quarter: 2009Q2

REPORT INFORMATION
  Report Type: 
  Country: None (occurrence: None)
  Receive Date: 20090416
  Receipt Date: 20090413
  Transmission Date: 20091009
  Serious: Yes (Other)
  Sender: FDA-Public Use
  Company Number: PHEH2009US03645

PATIENT
  Age: 54 Year
  Sex: Male

DRUGS (3)
  1. DIOVAN HCT [Suspect]
     Dosage: 320/25 MG
  2. NORVASC [Concomitant]
     Dosage: 5 MG, UNK
  3. WELCHOL [Concomitant]

REACTIONS (3)
  - HYPOAESTHESIA [None]
  - IMPAIRED DRIVING ABILITY [None]
  - NERVE INJURY [None]
